FAERS Safety Report 6967937-0 (Version None)
Quarter: 2010Q3

REPORT INFORMATION
  Report Type: 
  Country: None (occurrence: None)
  Receive Date: 20100907
  Receipt Date: 20100826
  Transmission Date: 20110219
  Serious: Yes (Hospitalization)
  Sender: FDA-Public Use
  Company Number: US-ASTRAZENECA-2010SE40213

PATIENT
  Age: 76 Year
  Sex: Female

DRUGS (6)
  1. CRESTOR [Suspect]
     Route: 048
  2. LUNESTA [Concomitant]
     Indication: SLEEP DISORDER
  3. DILANTIN [Concomitant]
     Indication: CONVULSION
  4. METOPROLOL TARTRATE [Concomitant]
     Indication: CARDIAC DISORDER
  5. DIGOXIN [Concomitant]
     Indication: CARDIAC DISORDER
  6. PRILOSEC [Concomitant]

REACTIONS (4)
  - COLECTOMY [None]
  - LOSS OF CONSCIOUSNESS [None]
  - SURGERY [None]
  - WEIGHT DECREASED [None]
